FAERS Safety Report 4331089-6 (Version None)
Quarter: 2004Q1

REPORT INFORMATION
  Report Type: 
  Country: None (occurrence: None)
  Receive Date: 20040331
  Receipt Date: 20040321
  Transmission Date: 20041129
  Serious: Yes (Hospitalization)
  Sender: FDA-Public Use
  Company Number: 200411384BCC

PATIENT
  Age: 21 Year
  Sex: Female
  Weight: 71.2147 kg

DRUGS (2)
  1. ALEVE [Suspect]
     Dosage: ONCE, ORAL
     Route: 048
     Dates: start: 20040321
  2. PAMPRIN TAB [Suspect]
     Dosage: ORAL
     Route: 048
     Dates: start: 20040321

REACTIONS (2)
  - BLOOD POTASSIUM DECREASED [None]
  - NAUSEA [None]
